FAERS Safety Report 23744278 (Version 1)
Quarter: 2024Q2

REPORT INFORMATION
  Report Type: Spontaneous
  Country: BR (occurrence: BR)
  Receive Date: 20240415
  Receipt Date: 20240415
  Transmission Date: 20240716
  Serious: Yes (Other)
  Sender: FDA-Public Use
  Company Number: BR-AMGEN-BRASP2024073204

PATIENT
  Age: 51 Year
  Sex: Male

DRUGS (2)
  1. CINACALCET HYDROCHLORIDE [Suspect]
     Active Substance: CINACALCET HYDROCHLORIDE
     Indication: Calciphylaxis
     Dosage: 30 MILLIGRAM, QD
     Route: 065
  2. PAPAIN [Concomitant]
     Active Substance: PAPAIN
     Indication: Calciphylaxis
     Dosage: 10 PERCENT, QD
     Route: 065

REACTIONS (3)
  - Calciphylaxis [Recovered/Resolved]
  - Quality of life decreased [Recovered/Resolved]
  - Off label use [Unknown]
